FAERS Safety Report 6844803-2 (Version None)
Quarter: 2010Q3

REPORT INFORMATION
  Report Type: 
  Country: None (occurrence: None)
  Receive Date: 20100713
  Receipt Date: 20100625
  Transmission Date: 20110219
  Serious: Yes (Other)
  Sender: FDA-Public Use
  Company Number: AUR-APL-2010-01663

PATIENT
  Sex: Male
  Weight: 88.4514 kg

DRUGS (9)
  1. LISINOPRIL [Suspect]
     Indication: HYPERTENSION
     Dosage: 25 MG, DAILY, ORAL
     Route: 048
  2. METOPORLOL [Suspect]
     Indication: HYPERTENSION
     Dosage: 25MG, DAILY, ORAL
     Route: 048
  3. ZOLOFT [Suspect]
     Indication: HYPERTENSION
     Dosage: 50MG-DAILY-ORAL
     Route: 048
     Dates: start: 20080101, end: 20090101
  4. XANAX [Suspect]
     Indication: HYPERTENSION
     Dosage: 0.5 MG-DAILY-ORAL
     Route: 048
     Dates: start: 20080101, end: 20090101
  5. NORVASC [Concomitant]
  6. HYDROCHLOROTHIAZIDE [Concomitant]
  7. ATACAND [Concomitant]
  8. DILTIAZEM [Concomitant]
  9. SPIRONOLACTONE [Concomitant]

REACTIONS (8)
  - ANXIETY [None]
  - BLOOD CHOLESTEROL ABNORMAL [None]
  - COUGH [None]
  - EAR DISCOMFORT [None]
  - INFLUENZA LIKE ILLNESS [None]
  - TINNITUS [None]
  - WEIGHT INCREASED [None]
  - WITHDRAWAL SYNDROME [None]
